FAERS Safety Report 7588612-8 (Version None)
Quarter: 2011Q3

REPORT INFORMATION
  Report Type: 
  Country: None (occurrence: None)
  Receive Date: 20110705
  Receipt Date: 20110621
  Transmission Date: 20111222
  Serious: Yes (Hospitalization)
  Sender: FDA-Public Use
  Company Number: IE-JNJFOC-20110610453

PATIENT
  Sex: Male
  Weight: 63 kg

DRUGS (7)
  1. ABIRATERONE ACETATE [Suspect]
     Route: 048
  2. DOMPERIDONE [Concomitant]
     Indication: NAUSEA
     Route: 048
  3. RAMIPRIL [Concomitant]
     Indication: BLOOD PRESSURE
     Route: 048
  4. TRAMADOL HCL [Concomitant]
     Indication: PAIN
     Route: 048
  5. ABIRATERONE ACETATE [Suspect]
     Indication: PROSTATE CANCER METASTATIC
     Route: 048
     Dates: start: 20110607, end: 20110620
  6. MST [Concomitant]
     Indication: PAIN
     Route: 048
  7. LANSOPRAZOLE [Concomitant]
     Indication: NAUSEA
     Route: 048

REACTIONS (1)
  - CONFUSIONAL STATE [None]
